FAERS Safety Report 24223584 (Version 2)
Quarter: 2024Q3

REPORT INFORMATION
  Report Type: Report from Study
  Country: US (occurrence: US)
  Receive Date: 20240819
  Receipt Date: 20240823
  Transmission Date: 20241017
  Serious: Yes (Other)
  Sender: PFIZER
  Company Number: US-PFIZER INC-PV202400106556

PATIENT

DRUGS (3)
  1. RUXIENCE [Suspect]
     Active Substance: RITUXIMAB-PVVR
     Indication: Hairy cell leukaemia
     Dosage: 3 DAYS BEFORE CYCLE 1 DAY 1
  2. RUXIENCE [Suspect]
     Active Substance: RITUXIMAB-PVVR
     Dosage: ON SUBSEQUENT 28-DAY CYCLES,RITUXIMAB PRIOR TO MOXE ON DAY 1
  3. MOXETUMOMAB PASUDOTOX [Suspect]
     Active Substance: MOXETUMOMAB PASUDOTOX
     Indication: Hairy cell leukaemia
     Dosage: MOXE WAS GIVEN BY 30-MINUTE INFUSION DAYS 1, 3 AND 5

REACTIONS (1)
  - Haemolytic uraemic syndrome [Unknown]
